FAERS Safety Report 9369733 (Version 2)
Quarter: 2013Q4

REPORT INFORMATION
  Report Type: Spontaneous
  Country: GB (occurrence: GB)
  Receive Date: 20130626
  Receipt Date: 20131025
  Transmission Date: 20140711
  Serious: Yes (Life-Threatening, Hospitalization)
  Sender: FDA-Public Use
  Company Number: GB-BANPHARM-20131413

PATIENT
  Age: 69 Year
  Sex: Male

DRUGS (9)
  1. IBUPROFEN UNKNOWN PRODUCT [Suspect]
     Indication: PAIN
     Dosage: 200 MG, TID,
     Route: 048
     Dates: start: 201005, end: 20130518
  2. IBUPROFEN UNKNOWN PRODUCT [Suspect]
     Indication: PAIN
     Dosage: 400 MG, TID,
     Route: 048
     Dates: start: 20130518, end: 20130528
  3. APIXABAN [Suspect]
     Indication: KNEE ARTHROPLASTY
     Dosage: 2.5 MG, BID,
     Route: 048
     Dates: start: 20130517, end: 20130527
  4. AMLODIPINE [Concomitant]
  5. BENDROFLUMETHIAZIDE [Concomitant]
  6. LATANOPROST [Concomitant]
  7. METFORMIN [Concomitant]
  8. SIMVASTATIN [Concomitant]
  9. TIMOLOL [Concomitant]

REACTIONS (1)
  - Gastrointestinal haemorrhage [Recovering/Resolving]
